FAERS Safety Report 7134184-1 (Version None)
Quarter: 2010Q4

REPORT INFORMATION
  Report Type: 
  Country: None (occurrence: None)
  Receive Date: 20101117
  Receipt Date: 20101109
  Transmission Date: 20110411
  Serious: Yes (Death, Hospitalization)
  Sender: FDA-Public Use
  Company Number: 2010MA004369

PATIENT
  Age: 13 Month
  Sex: Male

DRUGS (9)
  1. HYDROCORTISONE 1%-P CREAM [Suspect]
     Dosage: 1X;INTH
     Route: 055
  2. PREDNISOLONE [Suspect]
     Dosage: 40 MG/M**2;QD;PO
     Route: 048
  3. VINCRISTINE (VINCRISTINE) [Suspect]
     Dosage: 1.5 MG/M**2;QD
  4. IDARUBICIN (IDARUBICIN) [Suspect]
     Dosage: 8 MG/M**2;QD
  5. ASPARAGINASE (ASPARAGINASE) [Suspect]
     Dosage: 5000 UG/M**2;QD
  6. METHOTREXATE (METHOTREXATE) [Suspect]
     Dosage: 1X;INTH
     Route: 055
  7. CYTARABINE [Suspect]
     Dosage: 1X;INTH
     Route: 055
  8. CON MEDS [Concomitant]
  9. PREV MEDS [Concomitant]

REACTIONS (17)
  - AGITATION [None]
  - BLOOD BILIRUBIN INCREASED [None]
  - CAECITIS [None]
  - CARDIOPULMONARY FAILURE [None]
  - COMA [None]
  - CONTINUOUS HAEMODIAFILTRATION [None]
  - GENERAL PHYSICAL HEALTH DETERIORATION [None]
  - HYPERAMMONAEMIC ENCEPHALOPATHY [None]
  - HYPOTHERMIA [None]
  - METABOLIC ALKALOSIS [None]
  - PAPILLOEDEMA [None]
  - PETECHIAE [None]
  - PUPIL FIXED [None]
  - RESPIRATORY ALKALOSIS [None]
  - TACHYPNOEA [None]
  - TRANSAMINASES INCREASED [None]
  - UNRESPONSIVE TO STIMULI [None]
